FAERS Safety Report 15095144 (Version 1)
Quarter: 2018Q3

REPORT INFORMATION
  Report Type: Report from Study
  Country: IT (occurrence: IT)
  Receive Date: 20180702
  Receipt Date: 20180702
  Transmission Date: 20181010
  Serious: Yes (Other)
  Sender: FDA-Public Use
  Company Number: IT-TEVA-2018-IT-919448

PATIENT
  Age: 60 Year
  Sex: Male

DRUGS (5)
  1. SODIO LEVOFOLINATO MEDAC 50 MG/ML SOLUZIONE INIETTABILE O PER INFUSION [Suspect]
     Active Substance: LEVOLEUCOVORIN
     Route: 042
     Dates: start: 20180411, end: 20180411
  2. OXALIPLATINO KABI 5 MG/ML CONCENTRATO PER SOLUZIONE PER INFUSIONE [Suspect]
     Active Substance: OXALIPLATIN
     Route: 042
     Dates: start: 20180411, end: 20180411
  3. FLUOROURACIL. [Suspect]
     Active Substance: FLUOROURACIL
     Route: 042
     Dates: start: 20180411, end: 20180411
  4. AVASTIN [Suspect]
     Active Substance: BEVACIZUMAB
     Route: 042
     Dates: start: 20180411, end: 20180411
  5. FLUOROURACIL. [Suspect]
     Active Substance: FLUOROURACIL
     Route: 040
     Dates: start: 20180411, end: 20180411

REACTIONS (2)
  - Dyspnoea [Recovering/Resolving]
  - Choking sensation [Recovering/Resolving]

NARRATIVE: CASE EVENT DATE: 20180411
